FAERS Safety Report 4826305-8 (Version None)
Quarter: 2005Q4

REPORT INFORMATION
  Report Type: 
  Country: None (occurrence: None)
  Receive Date: 20051111
  Receipt Date: 20051101
  Transmission Date: 20060501
  Serious: Yes (Hospitalization)
  Sender: FDA-Public Use
  Company Number: 2005AP05631

PATIENT
  Age: 49 Year
  Sex: Male
  Weight: 45.8 kg

DRUGS (4)
  1. IRESSA [Suspect]
     Indication: NASOPHARYNGEAL CANCER
     Route: 048
     Dates: end: 20051025
  2. IRESSA [Suspect]
     Dosage: CYCLE 3 OF TREATMENT
     Route: 048
     Dates: start: 20051025, end: 20051101
  3. NIFEDIPINE [Concomitant]
     Indication: HYPERTENSION
     Route: 048
  4. PIRITON [Concomitant]
     Indication: RHINITIS ALLERGIC
     Route: 048

REACTIONS (3)
  - ABDOMINAL PAIN UPPER [None]
  - HAEMATURIA [None]
  - PROTEINURIA [None]
